FAERS Safety Report 24272157 (Version 1)
Quarter: 2024Q3

REPORT INFORMATION
  Report Type: Spontaneous
  Country: BO (occurrence: BO)
  Receive Date: 20240902
  Receipt Date: 20240902
  Transmission Date: 20241017
  Serious: Yes (Death, Other)
  Sender: NOVARTIS
  Company Number: BO-002147023-NVSC2024BO175631

PATIENT
  Sex: Female

DRUGS (1)
  1. GLIVEC [Suspect]
     Active Substance: IMATINIB MESYLATE
     Indication: Philadelphia positive acute lymphocytic leukaemia
     Dosage: 600 MG (6 X100MG)
     Route: 065

REACTIONS (2)
  - Philadelphia positive acute lymphocytic leukaemia [Fatal]
  - Malignant neoplasm progression [Fatal]
